FAERS Safety Report 8007780-7 (Version None)
Quarter: 2011Q4

REPORT INFORMATION
  Report Type: 
  Country: None (occurrence: None)
  Receive Date: 20111227
  Receipt Date: 20110805
  Transmission Date: 20120403
  Serious: No
  Sender: FDA-Public Use
  Company Number: US-TEVA-295167USA

PATIENT
  Sex: Female

DRUGS (1)
  1. ONDANSETRON [Suspect]

REACTIONS (3)
  - NAUSEA [None]
  - PREGNANCY [None]
  - MALAISE [None]
